FAERS Safety Report 4435368-3 (Version None)
Quarter: 2004Q3

REPORT INFORMATION
  Report Type: 
  Country: None (occurrence: None)
  Receive Date: 20040826
  Receipt Date: 20040819
  Transmission Date: 20050211
  Serious: Yes (Hospitalization, Other)
  Sender: FDA-Public Use
  Company Number: 200410700BVD

PATIENT
  Age: 40 Year
  Sex: Female
  Weight: 65 kg

DRUGS (1)
  1. AVELOX [Suspect]
     Indication: SINOBRONCHITIS
     Dosage: ORAL
     Route: 048
     Dates: start: 20040309, end: 20040310

REACTIONS (7)
  - COLLAGEN DISORDER [None]
  - EXANTHEM [None]
  - HYPERSENSITIVITY [None]
  - JOINT SWELLING [None]
  - POLYARTHRITIS [None]
  - TOXIC EPIDERMAL NECROLYSIS [None]
  - URTICARIA GENERALISED [None]
